FAERS Safety Report 6043219-9 (Version None)
Quarter: 2009Q1

REPORT INFORMATION
  Report Type: 
  Country: None (occurrence: None)
  Receive Date: 20090119
  Receipt Date: 20090112
  Transmission Date: 20090719
  Serious: Yes (Other)
  Sender: FDA-Public Use
  Company Number: AU-ELI_LILLY_AND_COMPANY-AU200809003628

PATIENT
  Sex: Female

DRUGS (5)
  1. BYETTA [Suspect]
     Dosage: 5 UG, UNK
  2. METFORMIN [Concomitant]
     Dosage: 1000 MG, 2/D
  3. KARVEZIDE [Concomitant]
     Dosage: UNK, DAILY (1/D)
  4. LIPITOR [Concomitant]
     Dosage: 20 MG, DAILY (1/D)
  5. NEXIUM [Concomitant]
     Dosage: 40 MG, DAILY (1/D)

REACTIONS (2)
  - BLOOD GLUCOSE INCREASED [None]
  - INCORRECT DOSE ADMINISTERED [None]
